FAERS Safety Report 12610829 (Version 3)
Quarter: 2016Q3

REPORT INFORMATION
  Report Type: Spontaneous
  Country: US (occurrence: US)
  Receive Date: 20160801
  Receipt Date: 20160902
  Transmission Date: 20161109
  Serious: No
  Sender: FDA-Public Use
  Company Number: US-PFIZER INC-2016327190

PATIENT
  Age: 79 Year
  Sex: Female

DRUGS (3)
  1. TIKOSYN [Suspect]
     Active Substance: DOFETILIDE
     Indication: SUPRAVENTRICULAR TACHYCARDIA
     Dosage: 250 UG, UNK
     Dates: start: 201511
  2. TIKOSYN [Suspect]
     Active Substance: DOFETILIDE
     Indication: ATRIAL FIBRILLATION
     Dosage: 0.25 MG, UNK
     Dates: start: 20151110
  3. ELIQUIS [Concomitant]
     Active Substance: APIXABAN
     Indication: SUPRAVENTRICULAR TACHYCARDIA
     Dosage: UNK
     Dates: start: 20151110

REACTIONS (2)
  - Visual impairment [Not Recovered/Not Resolved]
  - Dizziness [Unknown]

NARRATIVE: CASE EVENT DATE: 201601
